FAERS Safety Report 9728431 (Version 2)
Quarter: 2013Q4

REPORT INFORMATION
  Report Type: Spontaneous
  Country: JP (occurrence: JP)
  Receive Date: 20131204
  Receipt Date: 20131223
  Transmission Date: 20140711
  Serious: Yes (Other)
  Sender: FDA-Public Use
  Company Number: JP-ASTELLAS-2013JP013372

PATIENT
  Age: 23 Year
  Sex: Female

DRUGS (10)
  1. PROGRAF [Suspect]
     Indication: PROPHYLAXIS AGAINST GRAFT VERSUS HOST DISEASE
     Dosage: 0.4 MG, UNKNOWN/D
     Route: 048
     Dates: start: 2010, end: 2011
  2. METHOTREXATE [Suspect]
     Indication: PROPHYLAXIS AGAINST GRAFT VERSUS HOST DISEASE
     Dosage: UNK
     Route: 065
     Dates: start: 2010
  3. ACYCLOVIR /00587301/ [Suspect]
     Indication: ANTIVIRAL PROPHYLAXIS
     Dosage: 200 MG, UNKNOWN/D
     Route: 048
     Dates: start: 2010, end: 2010
  4. ACYCLOVIR /00587301/ [Suspect]
     Indication: VARICELLA VIRUS TEST POSITIVE
     Dosage: 200 MG, UNKNOWN/D
     Route: 048
     Dates: end: 2011
  5. ACYCLOVIR /00587301/ [Suspect]
     Dosage: 200 MG, UNKNOWN/D
     Route: 048
     Dates: start: 2011
  6. ACYCLOVIR /00587301/ [Suspect]
     Indication: VARICELLA VIRUS TEST POSITIVE
     Dosage: 750 MG, UNKNOWN/D
     Route: 041
     Dates: end: 2011
  7. LANSOPRAZOLE [Suspect]
     Indication: INFECTION PROPHYLAXIS
     Dosage: UNK
     Route: 065
     Dates: start: 2010, end: 2011
  8. VFEND [Suspect]
     Indication: INFECTION PROPHYLAXIS
     Dosage: UNK
     Route: 065
     Dates: start: 2011, end: 2011
  9. REBAMIPIDE [Suspect]
     Indication: INFECTION PROPHYLAXIS
     Dosage: UNK
     Route: 065
     Dates: end: 2011
  10. CICLOSPORIN [Suspect]
     Dosage: UNK
     Route: 065
     Dates: end: 2011

REACTIONS (3)
  - Drug ineffective [Unknown]
  - Acute graft versus host disease [Recovering/Resolving]
  - Drug-induced liver injury [Recovering/Resolving]
